FAERS Safety Report 18494698 (Version 27)
Quarter: 2025Q1

REPORT INFORMATION
  Report Type: Report from Study
  Country: US (occurrence: US)
  Receive Date: 20201112
  Receipt Date: 20250310
  Transmission Date: 20250409
  Serious: Yes (Hospitalization, Other)
  Sender: TAKEDA
  Company Number: US-TAKEDA-2020TUS048537

PATIENT
  Age: 39 Year
  Sex: Male
  Weight: 78.005 kg

DRUGS (52)
  1. HUMAN IMMUNOGLOBULIN G [Suspect]
     Active Substance: HUMAN IMMUNOGLOBULIN G
     Indication: Chronic inflammatory demyelinating polyradiculoneuropathy
     Dosage: 100 GRAM, Q3WEEKS
     Dates: start: 20090210
  2. HUMAN IMMUNOGLOBULIN G [Suspect]
     Active Substance: HUMAN IMMUNOGLOBULIN G
     Dosage: 100 GRAM, Q3WEEKS
     Dates: start: 20100106
  3. HUMAN IMMUNOGLOBULIN G [Suspect]
     Active Substance: HUMAN IMMUNOGLOBULIN G
     Dosage: 100 GRAM, Q4WEEKS
     Dates: start: 20100115
  4. HUMAN IMMUNOGLOBULIN G [Suspect]
     Active Substance: HUMAN IMMUNOGLOBULIN G
     Dosage: 100 GRAM, Q3WEEKS
     Dates: start: 20100505
  5. HUMAN IMMUNOGLOBULIN G [Suspect]
     Active Substance: HUMAN IMMUNOGLOBULIN G
     Dosage: 100 GRAM, Q3WEEKS
     Dates: start: 20140730
  6. HUMAN IMMUNOGLOBULIN G [Suspect]
     Active Substance: HUMAN IMMUNOGLOBULIN G
     Dosage: 100 GRAM, Q3WEEKS
  7. LISINOPRIL [Suspect]
     Active Substance: LISINOPRIL
     Indication: Product used for unknown indication
  8. MOUNJARO [Suspect]
     Active Substance: TIRZEPATIDE
     Indication: Product used for unknown indication
  9. BREO ELLIPTA [Concomitant]
     Active Substance: FLUTICASONE FUROATE\VILANTEROL TRIFENATATE
  10. DIPHENHYDRAMINE HYDROCHLORIDE [Concomitant]
     Active Substance: DIPHENHYDRAMINE HYDROCHLORIDE
  11. DIPHENHYDRAMINE [Concomitant]
     Active Substance: DIPHENHYDRAMINE
  12. PANTOPRAZOLE SODIUM [Concomitant]
     Active Substance: PANTOPRAZOLE SODIUM
  13. ATORVASTATIN CALCIUM [Concomitant]
     Active Substance: ATORVASTATIN CALCIUM
  14. DANTROLENE SODIUM [Concomitant]
     Active Substance: DANTROLENE SODIUM
  15. BACLOFEN [Concomitant]
     Active Substance: BACLOFEN
  16. DULOXETINE [Concomitant]
     Active Substance: DULOXETINE
  17. HYDROCHLOROTHIAZIDE [Concomitant]
     Active Substance: HYDROCHLOROTHIAZIDE
  18. LEVOMEFOLIC ACID [Concomitant]
     Active Substance: LEVOMEFOLIC ACID
  19. ABILIFY [Concomitant]
     Active Substance: ARIPIPRAZOLE
  20. VITAMIN D2 [Concomitant]
     Active Substance: ERGOCALCIFEROL
  21. VALIUM [Concomitant]
     Active Substance: DIAZEPAM
  22. POTASSIUM CHLORIDE [Concomitant]
     Active Substance: POTASSIUM CHLORIDE
  23. FOLIC ACID [Concomitant]
     Active Substance: FOLIC ACID
  24. ZALEPLON [Concomitant]
     Active Substance: ZALEPLON
  25. OXYCODONE AND ACETAMINOPHEN [Concomitant]
     Active Substance: ACETAMINOPHEN\OXYCODONE HYDROCHLORIDE
  26. PROAIR HFA [Concomitant]
     Active Substance: ALBUTEROL SULFATE
  27. GABAPENTIN [Concomitant]
     Active Substance: GABAPENTIN
  28. AMOXICILLIN AND CLAVULANATE POTASSIUM [Concomitant]
     Active Substance: AMOXICILLIN\CLAVULANATE POTASSIUM
  29. ACETAMINOPHEN [Concomitant]
     Active Substance: ACETAMINOPHEN
  30. HEPARIN [Concomitant]
     Active Substance: HEPARIN SODIUM
  31. EPINEPHRINE [Concomitant]
     Active Substance: EPINEPHRINE
  32. SODIUM CHLORIDE [Concomitant]
     Active Substance: SODIUM CHLORIDE
  33. FLUTICASONE PROPIONATE [Concomitant]
     Active Substance: FLUTICASONE PROPIONATE
  34. FERROUS SULFATE [Concomitant]
     Active Substance: FERROUS SULFATE
  35. TERBINAFINE HYDROCHLORIDE [Concomitant]
     Active Substance: TERBINAFINE HYDROCHLORIDE
  36. NICOTINE [Concomitant]
     Active Substance: NICOTINE
  37. ATORVASTATIN [Concomitant]
     Active Substance: ATORVASTATIN
  38. DULOXETINE HYDROCHLORIDE [Concomitant]
     Active Substance: DULOXETINE HYDROCHLORIDE
  39. AMOXICILLIN [Concomitant]
     Active Substance: AMOXICILLIN
  40. AER [Concomitant]
  41. NAPROXEN [Concomitant]
     Active Substance: NAPROXEN
  42. LAMOTRIGINE [Concomitant]
     Active Substance: LAMOTRIGINE
  43. DICLOFENAC SODIUM [Concomitant]
     Active Substance: DICLOFENAC SODIUM
  44. VOLTAREN ARTHRITIS PAIN [Concomitant]
     Active Substance: DICLOFENAC SODIUM
  45. VITAMIN D [Concomitant]
     Active Substance: VITAMIN D NOS
  46. VITAMIN B12 [Concomitant]
     Active Substance: CYANOCOBALAMIN
  47. VITAMIN B [Concomitant]
     Active Substance: VITAMIN B
  48. TRAMADOL HCL [Concomitant]
     Active Substance: TRAMADOL HYDROCHLORIDE
  49. PREGABALIN [Concomitant]
     Active Substance: PREGABALIN
  50. PROAIR HFA [Concomitant]
     Active Substance: ALBUTEROL SULFATE
  51. LOSARTAN POTASSIUM [Concomitant]
     Active Substance: LOSARTAN POTASSIUM
  52. CLONIDINE HYDROCHLORIDE [Concomitant]
     Active Substance: CLONIDINE HYDROCHLORIDE

REACTIONS (31)
  - Localised infection [Unknown]
  - Chronic cutaneous lupus erythematosus [Unknown]
  - Loss of consciousness [Unknown]
  - Seizure [Unknown]
  - COVID-19 [Unknown]
  - Fall [Unknown]
  - Ligament sprain [Unknown]
  - Illness [Recovered/Resolved]
  - Nasopharyngitis [Unknown]
  - Tooth infection [Not Recovered/Not Resolved]
  - Tooth abscess [Unknown]
  - Gingivitis [Unknown]
  - Weight increased [Unknown]
  - Hyperphagia [Unknown]
  - Arthritis [Unknown]
  - Head injury [Unknown]
  - Foot fracture [Unknown]
  - Haemorrhage [Unknown]
  - Inappropriate schedule of product administration [Unknown]
  - Weight decreased [Unknown]
  - Product use in unapproved indication [Unknown]
  - Sinusitis [Unknown]
  - Upper respiratory tract infection [Not Recovered/Not Resolved]
  - Asthma [Unknown]
  - Contusion [Unknown]
  - Infusion site extravasation [Unknown]
  - Pain [Not Recovered/Not Resolved]
  - Pain in extremity [Unknown]
  - Diarrhoea [Recovered/Resolved]
  - Dizziness [Unknown]
  - Headache [Not Recovered/Not Resolved]

NARRATIVE: CASE EVENT DATE: 20090210
